FAERS Safety Report 6358455-1 (Version None)
Quarter: 2009Q3

REPORT INFORMATION
  Report Type: 
  Country: None (occurrence: None)
  Receive Date: 20090916
  Receipt Date: 20090120
  Transmission Date: 20100115
  Serious: No
  Sender: FDA-Public Use
  Company Number: US-AMGEN-KDL329413

PATIENT
  Sex: Male
  Weight: 40.4 kg

DRUGS (8)
  1. NEUPOGEN [Suspect]
     Indication: NEUTROPENIA
     Dates: start: 20081201
  2. PEGASYS [Concomitant]
  3. SUSTIVA [Concomitant]
  4. RIBAVIRIN [Concomitant]
  5. ENALAPRIL MALEATE [Concomitant]
  6. PROCRIT [Concomitant]
     Indication: PRE-EXISTING DISEASE
  7. TRUVADA [Concomitant]
  8. NEUMEGA [Concomitant]

REACTIONS (4)
  - BLOOD PRESSURE DECREASED [None]
  - INJECTION SITE EXTRAVASATION [None]
  - INJECTION SITE PAIN [None]
  - MALAISE [None]
